FAERS Safety Report 5120679-9 (Version None)
Quarter: 2006Q4

REPORT INFORMATION
  Report Type: 
  Country: None (occurrence: None)
  Receive Date: 20061003
  Receipt Date: 20061003
  Transmission Date: 20070319
  Serious: No
  Sender: FDA-Public Use
  Company Number: None

PATIENT
  Age: 88 Year
  Sex: Male
  Weight: 48 kg

DRUGS (1)
  1. WARFARIN SODIUM [Suspect]
     Indication: ATRIAL FIBRILLATION
     Dosage: 4 MG M-FR     3 MG  SA-SU
     Route: 048
     Dates: start: 20051123, end: 20060515

REACTIONS (1)
  - INTERNATIONAL NORMALISED RATIO INCREASED [None]
